FAERS Safety Report 24004316 (Version 1)
Quarter: 2024Q2

REPORT INFORMATION
  Report Type: Spontaneous
  Country: US (occurrence: US)
  Receive Date: 20240624
  Receipt Date: 20240624
  Transmission Date: 20240716
  Serious: Yes (Hospitalization, Other)
  Sender: FDA-Public Use
  Company Number: US-PIRAMAL CRITICAL CARE LIMITED-2024-PPL-000477

PATIENT

DRUGS (3)
  1. BACLOFEN [Suspect]
     Active Substance: BACLOFEN
     Indication: Product used for unknown indication
     Dosage: 2400 MICROGRAM PER DAY
     Route: 037
  2. BACLOFEN [Suspect]
     Active Substance: BACLOFEN
     Dosage: DECREASED BY 7.5% TO 2220 ?G/DAY
     Route: 037
  3. BACLOFEN [Suspect]
     Active Substance: BACLOFEN
     Dosage: DECREASED EVERY 24 HOURS BY 4.9% TO 7.5% FOR 2 DAYS TO ARRIVE AT 1955.6 ?G/DAY

REACTIONS (5)
  - Lethargy [Unknown]
  - Toxicity to various agents [Unknown]
  - Respiratory depression [Unknown]
  - Nystagmus [Recovering/Resolving]
  - Dysphagia [Unknown]
